FAERS Safety Report 8299366-4 (Version None)
Quarter: 2012Q2

REPORT INFORMATION
  Report Type: 
  Country: None (occurrence: None)
  Receive Date: 20120419
  Receipt Date: 20120416
  Transmission Date: 20120825
  Serious: Yes (Other)
  Sender: FDA-Public Use
  Company Number: US-ABBOTT-12P-163-0926507-00

PATIENT
  Sex: Female

DRUGS (2)
  1. HUMIRA [Suspect]
     Indication: CROHN'S DISEASE
     Dates: start: 20100101
  2. HUMIRA [Suspect]
     Indication: INTESTINAL FISTULA

REACTIONS (2)
  - VAGINAL CANCER [None]
  - CERVIX CARCINOMA [None]
